FAERS Safety Report 6587636-7 (Version None)
Quarter: 2010Q1

REPORT INFORMATION
  Report Type: 
  Country: None (occurrence: None)
  Receive Date: 20100218
  Receipt Date: 20100120
  Transmission Date: 20100710
  Serious: Yes (Hospitalization)
  Sender: FDA-Public Use
  Company Number: AU-BAYER-201013224GPV

PATIENT
  Age: 70 Year
  Sex: Male
  Weight: 93 kg

DRUGS (8)
  1. FLUDARABINE [Suspect]
     Indication: CHRONIC LYMPHOCYTIC LEUKAEMIA
     Route: 048
     Dates: end: 20091231
  2. RITUXIMAB [Suspect]
     Indication: CHRONIC LYMPHOCYTIC LEUKAEMIA
     Route: 042
  3. MOCLOBEMIDE [Concomitant]
  4. BACTRIM [Concomitant]
     Dates: start: 20090924
  5. METOCLOPRAMIDE HYDROCHLORIDE [Concomitant]
     Dates: start: 20090101
  6. PARACETAMOL [Concomitant]
     Dates: start: 20090813
  7. DOLASETRON [Concomitant]
     Dates: start: 20090917
  8. CELECOXIB [Concomitant]
     Dates: start: 20080101

REACTIONS (7)
  - CEREBROVASCULAR SPASM [None]
  - COMPLICATED MIGRAINE [None]
  - CONFUSIONAL STATE [None]
  - DEPRESSED LEVEL OF CONSCIOUSNESS [None]
  - HEADACHE [None]
  - PHOTOPHOBIA [None]
  - TRANSIENT ISCHAEMIC ATTACK [None]
